FAERS Safety Report 17127647 (Version 1)
Quarter: 2019Q4

REPORT INFORMATION
  Report Type: Spontaneous
  Country: US (occurrence: US)
  Receive Date: 20191114
  Receipt Date: 20191114
  Transmission Date: 20200122
  Serious: Yes (Hospitalization, Other)
  Sender: FDA-Public Use
  Company Number: None

PATIENT
  Age: 62 Year
  Sex: Female

DRUGS (17)
  1. URSODIOL. [Concomitant]
     Active Substance: URSODIOL
  2. AMBRISENTAN 10MG TABLETS 30/BO: 10MG [Suspect]
     Active Substance: AMBRISENTAN
     Indication: PULMONARY ARTERIAL HYPERTENSION
     Route: 048
     Dates: start: 201407
  3. POTASSIUM CHLORIDE. [Concomitant]
     Active Substance: POTASSIUM CHLORIDE
  4. FUROSEMIDE. [Concomitant]
     Active Substance: FUROSEMIDE
  5. LACTULOSE. [Concomitant]
     Active Substance: LACTULOSE
  6. RIFAXIMIN. [Concomitant]
     Active Substance: RIFAXIMIN
  7. FERROUS SULFATE. [Concomitant]
     Active Substance: FERROUS SULFATE
  8. OMEPRAZOLE. [Concomitant]
     Active Substance: OMEPRAZOLE
  9. ATROVASTATIN [Concomitant]
     Active Substance: ATORVASTATIN CALCIUM
  10. LOSARTAN. [Concomitant]
     Active Substance: LOSARTAN
  11. LEVOTHYROXINE. [Concomitant]
     Active Substance: LEVOTHYROXINE
  12. SILDENAFIL. [Concomitant]
     Active Substance: SILDENAFIL
  13. NORCO [Concomitant]
     Active Substance: ACETAMINOPHEN\HYDROCODONE BITARTRATE
  14. METOPROLOL. [Concomitant]
     Active Substance: METOPROLOL
  15. PHENYTOIN. [Concomitant]
     Active Substance: PHENYTOIN
  16. CALCIUM CARBONATE- VIT D3 [Concomitant]
  17. ATROVENT [Concomitant]
     Active Substance: IPRATROPIUM BROMIDE

REACTIONS (5)
  - Ammonia increased [None]
  - Seizure [None]
  - Drug level decreased [None]
  - Hepatic encephalopathy [None]
  - Treatment noncompliance [None]

NARRATIVE: CASE EVENT DATE: 20191112
